FAERS Safety Report 6743479-2 (Version None)
Quarter: 2010Q2

REPORT INFORMATION
  Report Type: 
  Country: None (occurrence: None)
  Receive Date: 20100527
  Receipt Date: 20100515
  Transmission Date: 20101027
  Serious: Yes (Other)
  Sender: FDA-Public Use
  Company Number: US-NOVOPROD-308831

PATIENT
  Sex: Male
  Weight: 96.5 kg

DRUGS (17)
  1. NOVOLIN 70/30 [Suspect]
     Indication: DIABETES MELLITUS
     Dosage: 12 U, BID
     Route: 058
     Dates: start: 20100506, end: 20100506
  2. NOVOLIN 70/30 [Suspect]
     Dosage: 16 U, BID
     Route: 058
     Dates: start: 20100507, end: 20100509
  3. ASCORBIC ACID [Concomitant]
     Indication: NUTRITIONAL SUPPORT
     Dosage: 250 MG, QD
     Route: 048
  4. BENAZEPRIL HYDROCHLORIDE [Concomitant]
     Indication: BLOOD PRESSURE
     Dosage: 10 MG, QD
     Route: 048
  5. BENAZEPRIL HYDROCHLORIDE [Concomitant]
     Indication: CARDIOVASCULAR EVENT PROPHYLAXIS
  6. CEPHALEXIN [Concomitant]
     Indication: CARDIAC PACEMAKER INSERTION
     Dosage: 500 MG, QID
     Route: 048
     Dates: start: 20100506, end: 20100516
  7. CLOPIDOGREL BISULFATE [Concomitant]
     Indication: CEREBROVASCULAR ACCIDENT PROPHYLAXIS
     Dosage: 75 MG, QD
     Route: 048
  8. ACETAMINOPHEN AND HYDROCODONE BITARTRATE [Concomitant]
     Indication: PAIN
     Dosage: 7.5/500 MG, TID
     Route: 048
  9. MELOXICAM [Concomitant]
     Indication: ARTHRALGIA
     Dosage: 15 MG, QD
     Route: 048
  10. METOPROLOL [Concomitant]
     Indication: BLOOD PRESSURE
     Dosage: 12.5 MG, BID
     Route: 048
  11. METOPROLOL [Concomitant]
     Indication: CARDIOVASCULAR EVENT PROPHYLAXIS
  12. NIFEDIPINE [Concomitant]
     Indication: BLOOD PRESSURE
     Dosage: 60 MG, QD
     Route: 048
  13. NIFEDIPINE [Concomitant]
     Indication: CARDIOVASCULAR EVENT PROPHYLAXIS
  14. NITROGLYCERIN [Concomitant]
     Indication: CHEST PAIN
     Dosage: 0.4 MG, PRN
     Route: 060
  15. ROSUVASTATIN [Concomitant]
     Indication: BLOOD CHOLESTEROL INCREASED
     Dosage: 20 MG, QD
     Route: 048
     Dates: start: 20091029
  16. GLIPIZIDE [Concomitant]
     Indication: DIABETES MELLITUS
     Dosage: 2.5 MG, BID
  17. INSULIN GLARGINE [Concomitant]
     Indication: DIABETES MELLITUS
     Dosage: 22 U, QHS
     Route: 058
     Dates: start: 20100510

REACTIONS (1)
  - RASH MACULO-PAPULAR [None]
